FAERS Safety Report 7478281-X (Version None)
Quarter: 2011Q2

REPORT INFORMATION
  Report Type: 
  Country: None (occurrence: None)
  Receive Date: 20110513
  Receipt Date: 20110510
  Transmission Date: 20111010
  Serious: Yes (Other)
  Sender: FDA-Public Use
  Company Number: PHHY2011CH35767

PATIENT
  Sex: Female

DRUGS (1)
  1. GILENYA [Suspect]
     Indication: RELAPSING-REMITTING MULTIPLE SCLEROSIS
     Dosage: UNK
     Route: 048
     Dates: start: 20110329

REACTIONS (7)
  - HYPOTENSION [None]
  - LEUKOPENIA [None]
  - DIZZINESS [None]
  - MALAISE [None]
  - NAUSEA [None]
  - LYMPHOPENIA [None]
  - HEADACHE [None]
